FAERS Safety Report 25576053 (Version 2)
Quarter: 2025Q3

REPORT INFORMATION
  Report Type: Report from Study
  Country: US (occurrence: US)
  Receive Date: 20250718
  Receipt Date: 20250827
  Transmission Date: 20251020
  Serious: Yes (Hospitalization)
  Sender: SUNOVION
  Company Number: US-SUMITOMO PHARMA SWITZERLAND GMBH-2025SPA008211

PATIENT
  Age: 80 Year
  Sex: Male

DRUGS (13)
  1. ORGOVYX [Suspect]
     Active Substance: RELUGOLIX
     Indication: Prostate cancer
     Route: 048
  2. ORGOVYX [Suspect]
     Active Substance: RELUGOLIX
     Route: 048
  3. ACTOS [Concomitant]
     Active Substance: PIOGLITAZONE HYDROCHLORIDE
  4. CALCIUM\MAGNESIUM [Concomitant]
     Active Substance: CALCIUM\MAGNESIUM
  5. VITAMINS [Concomitant]
     Active Substance: VITAMINS
  6. FINASTERIDE [Concomitant]
     Active Substance: FINASTERIDE
  7. ASPIRIN [Concomitant]
     Active Substance: ASPIRIN
  8. INSULIN NOS [Concomitant]
     Active Substance: INSULIN NOS
  9. LISINOPRIL [Concomitant]
     Active Substance: LISINOPRIL
  10. ROSUVASTATIN [Concomitant]
     Active Substance: ROSUVASTATIN
  11. VITAMIN D3 [Concomitant]
     Active Substance: CHOLECALCIFEROL
  12. ZETIA [Concomitant]
     Active Substance: EZETIMIBE
  13. GABAPENTIN [Concomitant]
     Active Substance: GABAPENTIN

REACTIONS (3)
  - Renal disorder [Unknown]
  - Hot flush [Unknown]
  - Product dose omission issue [Unknown]
